FAERS Safety Report 19064601 (Version 1)
Quarter: 2021Q1

REPORT INFORMATION
  Report Type: Spontaneous
  Country: US (occurrence: US)
  Receive Date: 20210326
  Receipt Date: 20210326
  Transmission Date: 20210420
  Serious: No
  Sender: FDA-Public Use
  Company Number: US-ORGANON-O2103USA000159

PATIENT
  Sex: Female

DRUGS (2)
  1. NEXPLANON [Suspect]
     Active Substance: ETONOGESTREL
     Dosage: 1 DOSAGE FORM (IMPLANT)
  2. NEXPLANON [Suspect]
     Active Substance: ETONOGESTREL
     Dosage: UNK
     Route: 059

REACTIONS (8)
  - Mood swings [Unknown]
  - Device issue [Not Recovered/Not Resolved]
  - Implant site fibrosis [Unknown]
  - Complication of device removal [Not Recovered/Not Resolved]
  - Weight increased [Unknown]
  - Device deployment issue [Not Recovered/Not Resolved]
  - Headache [Unknown]
  - Menstruation irregular [Unknown]
